FAERS Safety Report 6216790-1 (Version None)
Quarter: 2009Q2

REPORT INFORMATION
  Report Type: 
  Country: None (occurrence: None)
  Receive Date: 20090603
  Receipt Date: 20090603
  Transmission Date: 20091009
  Serious: No
  Sender: FDA-Public Use
  Company Number: None

PATIENT
  Sex: Male
  Weight: 99.7913 kg

DRUGS (1)
  1. ZETIA [Suspect]
     Indication: BLOOD CHOLESTEROL INCREASED
     Dosage: 1 TAB DAILY ORAL
     Route: 048
     Dates: start: 20090414, end: 20090421

REACTIONS (3)
  - HEADACHE [None]
  - LISTLESS [None]
  - MUSCULAR WEAKNESS [None]
